FAERS Safety Report 8342264-8 (Version None)
Quarter: 2012Q2

REPORT INFORMATION
  Report Type: 
  Country: None (occurrence: None)
  Receive Date: 20120507
  Receipt Date: 20120503
  Transmission Date: 20120825
  Serious: Yes (Other)
  Sender: FDA-Public Use
  Company Number: US-GILEAD-2012-0054037

PATIENT
  Sex: Female

DRUGS (1)
  1. LETAIRIS [Suspect]
     Indication: PULMONARY HYPERTENSION
     Dosage: 5 MG, UNK
     Route: 048
     Dates: start: 20120416, end: 20120420

REACTIONS (6)
  - NERVOUSNESS [None]
  - RASH [None]
  - DEPRESSION [None]
  - CONSTIPATION [None]
  - SUICIDAL IDEATION [None]
  - ANXIETY [None]
